FAERS Safety Report 5570336-X (Version None)
Quarter: 2007Q4

REPORT INFORMATION
  Report Type: 
  Country: None (occurrence: None)
  Receive Date: 20071219
  Receipt Date: 20071219
  Transmission Date: 20080405
  Serious: Yes (Other)
  Sender: FDA-Public Use
  Company Number: None

PATIENT
  Sex: Male

DRUGS (5)
  1. REVLIMID [Suspect]
     Indication: MULTIPLE MYELOMA
     Dosage: 25MG DAILY X21D/28D PO
     Route: 048
     Dates: start: 20070824, end: 20071018
  2. REVLIMID [Suspect]
  3. REVLIMID [Suspect]
  4. DEXAMETHASONE TAB [Concomitant]
  5. WARFARIN SODIUM [Concomitant]

REACTIONS (1)
  - LEUKOPENIA [None]
